FAERS Safety Report 19751177 (Version 7)
Quarter: 2022Q4

REPORT INFORMATION
  Report Type: Report from Study
  Country: TR (occurrence: None)
  Receive Date: 20210826
  Receipt Date: 20221223
  Transmission Date: 20230113
  Serious: Yes (Hospitalization)
  Sender: FDA-Public Use
  Company Number: TR-ROCHE-2894961

PATIENT
  Age: 72 Year
  Sex: Male
  Weight: 52 kg

DRUGS (13)
  1. TIRAGOLUMAB [Suspect]
     Active Substance: TIRAGOLUMAB
     Indication: Small cell lung cancer extensive stage
     Dosage: DATE OF MOST RECENT DOSE OF BLINDED TIRAGOLUMAB PRIOR TO AE/SAE: 05/AUG/2021
     Route: 042
     Dates: start: 20210315
  2. CARBOPLATIN [Suspect]
     Active Substance: CARBOPLATIN
     Indication: Small cell lung cancer extensive stage
     Dosage: DATE OF MOST RECENT DOSE OF 467 MG CARBOPLATIN PRIOR TO AE/SAE: 17/MAY/2021
     Route: 042
     Dates: start: 20210315
  3. ETOPOSIDE [Suspect]
     Active Substance: ETOPOSIDE
     Indication: Small cell lung cancer extensive stage
     Dosage: DATE OF MOST RECENT DOSE OF 158 MG ETOPOSIDE PRIOR TO AE/SAE: 19/MAY/2021?(ON DAYS 1, 2 AND 3 OF EAC
     Route: 042
     Dates: start: 20210315
  4. ATEZOLIZUMAB [Suspect]
     Active Substance: ATEZOLIZUMAB
     Indication: Small cell lung cancer extensive stage
     Dosage: DATE OF MOST RECENT DOSE OF 1200 MG ATEZOLIZUMAB PRIOR TO AE/SAE: 05/AUG/2021
     Route: 041
     Dates: start: 20210315
  5. DEXAMETHASONE [Concomitant]
     Active Substance: DEXAMETHASONE
     Route: 042
     Dates: start: 20210315
  6. PALONOSETRON HYDROCHLORIDE [Concomitant]
     Active Substance: PALONOSETRON HYDROCHLORIDE
     Route: 042
     Dates: start: 20210315
  7. NYSTATIN [Concomitant]
     Active Substance: NYSTATIN
     Indication: Stomatitis
     Route: 048
     Dates: start: 20210315
  8. GERALGINE-K [Concomitant]
     Indication: Pain
     Route: 048
     Dates: start: 20210312
  9. CATAFLAM [Concomitant]
     Active Substance: DICLOFENAC POTASSIUM
     Indication: Pain
     Route: 048
     Dates: start: 20210312
  10. THIOCOLCHICOSIDE [Concomitant]
     Active Substance: THIOCOLCHICOSIDE
     Indication: Spinal fracture
     Route: 048
     Dates: start: 20210712
  11. DICLOFLAM [Concomitant]
     Indication: Spinal fracture
     Route: 048
     Dates: start: 20210712
  12. DRAMAMINE [Concomitant]
     Active Substance: DIMENHYDRINATE
     Indication: Nausea
     Route: 048
     Dates: start: 20210813, end: 20210818
  13. MAGNESIE CALCINEE [Concomitant]
     Indication: Constipation
     Dates: start: 20210607

REACTIONS (1)
  - Dizziness [Recovering/Resolving]

NARRATIVE: CASE EVENT DATE: 20210810
